FAERS Safety Report 5207735-1 (Version None)
Quarter: 2006Q4

REPORT INFORMATION
  Report Type: 
  Country: None (occurrence: None)
  Receive Date: 20061030
  Receipt Date: 20060926
  Transmission Date: 20070319
  Serious: No
  Sender: FDA-Public Use
  Company Number: 2006CT000745

PATIENT
  Age: 45 Year
  Sex: Male
  Weight: 108 kg

DRUGS (7)
  1. VENTAVIS [Suspect]
     Indication: PULMONARY HYPERTENSION
     Dosage: 5 UG; 6XD; INH
     Route: 055
     Dates: start: 20060918, end: 20060923
  2. PANTOPRAZOLE SODIUM [Concomitant]
  3. FUROSEMIDE [Concomitant]
  4. TRACLEER [Concomitant]
  5. WARFARIN SODIUM [Concomitant]
  6. POTASSIUM ACETATE [Concomitant]
  7. OXYGENN [Concomitant]

REACTIONS (2)
  - CHEST DISCOMFORT [None]
  - FLUID RETENTION [None]
